FAERS Safety Report 9384103 (Version 1)
Quarter: 2013Q3

REPORT INFORMATION
  Report Type: Spontaneous
  Country: JP (occurrence: JP)
  Receive Date: 20130705
  Receipt Date: 20130705
  Transmission Date: 20140515
  Serious: Yes (Hospitalization)
  Sender: FDA-Public Use
  Company Number: JP-BRISTOL-MYERS SQUIBB COMPANY-19072941

PATIENT
  Age: 64 Year
  Sex: Female

DRUGS (6)
  1. METGLUCO [Suspect]
     Indication: TYPE 2 DIABETES MELLITUS
     Dosage: UNK-29MY13?31MY13-ONG 1000MG
     Route: 048
  2. GLIMEPIRIDE [Concomitant]
     Indication: TYPE 2 DIABETES MELLITUS
     Dosage: UNK-29MAY13?4JUN13-ONG
     Route: 048
  3. JANUVIA [Concomitant]
     Indication: TYPE 2 DIABETES MELLITUS
     Dosage: UNK-29MAY13?2JUN13-ONG
     Route: 048
  4. NATRIX [Concomitant]
     Indication: HYPERTENSION
     Route: 048
  5. NU-LOTAN [Concomitant]
     Indication: HYPERTENSION
     Route: 048
  6. CALONAL [Concomitant]
     Indication: PYREXIA
     Route: 048
     Dates: start: 20130527, end: 20130529

REACTIONS (1)
  - Gastroenteritis [Recovered/Resolved]
